FAERS Safety Report 5641527-4 (Version None)
Quarter: 2008Q1

REPORT INFORMATION
  Report Type: 
  Country: None (occurrence: None)
  Receive Date: 20080227
  Receipt Date: 20071018
  Transmission Date: 20080703
  Serious: No
  Sender: FDA-Public Use
  Company Number: A0688429A

PATIENT
  Age: 36 Year
  Sex: Female

DRUGS (1)
  1. NICORETTE (MINT) [Suspect]
     Dates: start: 20071015, end: 20071016

REACTIONS (3)
  - HYPERSENSITIVITY [None]
  - ORAL PRURITUS [None]
  - URTICARIA [None]
